FAERS Safety Report 17589017 (Version 1)
Quarter: 2020Q1

REPORT INFORMATION
  Report Type: Spontaneous
  Country: AU (occurrence: AU)
  Receive Date: 20200327
  Receipt Date: 20200327
  Transmission Date: 20200409
  Serious: Yes (Other)
  Sender: FDA-Public Use
  Company Number: AU-AMICUS THERAPEUTICS, INC.-AMI_790

PATIENT
  Age: 57 Year
  Sex: Female

DRUGS (1)
  1. GALAFOLD [Suspect]
     Active Substance: MIGALASTAT HYDROCHLORIDE
     Indication: FABRY^S DISEASE
     Dosage: UNK
     Route: 048
     Dates: start: 2019

REACTIONS (1)
  - End stage renal disease [Recovering/Resolving]

NARRATIVE: CASE EVENT DATE: 20191230
